FAERS Safety Report 8558666-0 (Version None)
Quarter: 2012Q3

REPORT INFORMATION
  Report Type: 
  Country: None (occurrence: None)
  Receive Date: 20120801
  Receipt Date: 20120725
  Transmission Date: 20120928
  Serious: Yes (Hospitalization, Other)
  Sender: FDA-Public Use
  Company Number: DE-JNJFOC-20120707000

PATIENT
  Sex: Male

DRUGS (4)
  1. XARELTO [Suspect]
     Indication: CEREBROVASCULAR ACCIDENT
     Route: 065
  2. XARELTO [Suspect]
     Indication: CEREBROVASCULAR ACCIDENT PROPHYLAXIS
     Route: 065
  3. XARELTO [Suspect]
     Route: 065
  4. XARELTO [Suspect]
     Route: 065

REACTIONS (2)
  - UPPER GASTROINTESTINAL HAEMORRHAGE [None]
  - MALLORY-WEISS SYNDROME [None]
